FAERS Safety Report 24972198 (Version 2)
Quarter: 2025Q3

REPORT INFORMATION
  Report Type: Spontaneous
  Country: US (occurrence: None)
  Receive Date: 20250214
  Receipt Date: 20250810
  Transmission Date: 20251020
  Serious: No
  Sender: ALEXION PHARMACEUTICALS
  Company Number: US-AstraZeneca-2011SE46796

PATIENT
  Age: 52 Year
  Sex: Female
  Weight: 54.9 kg

DRUGS (4)
  1. NEXIUM [Suspect]
     Active Substance: ESOMEPRAZOLE MAGNESIUM
     Dosage: 40 MILLIGRAM, QD
  2. EFFEXOR [Concomitant]
     Active Substance: VENLAFAXINE HYDROCHLORIDE
     Indication: Depression
  3. CLONOPIN [Concomitant]
     Active Substance: CLONAZEPAM
     Indication: Insomnia
  4. HYDROCODONE [Concomitant]
     Active Substance: HYDROCODONE
     Indication: Migraine

REACTIONS (1)
  - Tinnitus [Unknown]
